FAERS Safety Report 4333661-6 (Version None)
Quarter: 2004Q2

REPORT INFORMATION
  Report Type: 
  Country: None (occurrence: None)
  Receive Date: 20040405
  Receipt Date: 20040405
  Transmission Date: 20050107
  Serious: Yes (Life-Threatening, Hospitalization, Other)
  Sender: FDA-Public Use
  Company Number: None

PATIENT
  Age: 24 Year
  Sex: Female

DRUGS (1)
  1. DAPSONE [Suspect]
     Indication: SKIN INFECTION
     Dosage: 100 MG PO QD
     Route: 048

REACTIONS (2)
  - HEPATITIS FULMINANT [None]
  - LIVER TRANSPLANT [None]
